FAERS Safety Report 24416829 (Version 1)
Quarter: 2024Q4

REPORT INFORMATION
  Report Type: Spontaneous
  Country: US (occurrence: US)
  Receive Date: 20241009
  Receipt Date: 20241009
  Transmission Date: 20250115
  Serious: Yes (Life-Threatening, Hospitalization, Other)
  Sender: GLENMARK
  Company Number: US-MLMSERVICE-20240923-PI203849-00306-1

PATIENT

DRUGS (4)
  1. TACROLIMUS [Suspect]
     Active Substance: TACROLIMUS
     Indication: Immunosuppressant drug therapy
     Dosage: (TEMPORARY WITHDRAWAL)
     Route: 065
  2. TACROLIMUS [Suspect]
     Active Substance: TACROLIMUS
     Dosage: (RESTARTED)
     Route: 065
  3. MYCOPHENOLATE MOFETIL [Suspect]
     Active Substance: MYCOPHENOLATE MOFETIL
     Indication: Immunosuppressant drug therapy
     Dosage: UNK
     Route: 065
  4. PREDNISONE [Suspect]
     Active Substance: PREDNISONE
     Indication: Immunosuppressant drug therapy
     Dosage: UNK
     Route: 065

REACTIONS (9)
  - Drug level above therapeutic [Recovered/Resolved]
  - Hypercalcaemia [Unknown]
  - Leukocytosis [Unknown]
  - Hyponatraemia [Unknown]
  - Normocytic anaemia [Unknown]
  - Respiratory failure [Recovering/Resolving]
  - Pulmonary blastomycosis [Recovering/Resolving]
  - Disseminated blastomycosis [Recovering/Resolving]
  - Blastomycosis [Unknown]
